FAERS Safety Report 15276793 (Version 1)
Quarter: 2018Q3

REPORT INFORMATION
  Report Type: Spontaneous
  Country: US (occurrence: US)
  Receive Date: 20180814
  Receipt Date: 20180814
  Transmission Date: 20181010
  Serious: Yes (Hospitalization)
  Sender: FDA-Public Use
  Company Number: US-LUNDBECK-DKLU2052878

PATIENT
  Age: 46 Year
  Sex: Female

DRUGS (4)
  1. ONFI [Suspect]
     Active Substance: CLOBAZAM
     Route: 048
     Dates: start: 20151104
  2. TOPAMAX [Concomitant]
     Active Substance: TOPIRAMATE
     Indication: PRODUCT USED FOR UNKNOWN INDICATION
     Route: 065
  3. BRIVIACT [Concomitant]
     Active Substance: BRIVARACETAM
     Indication: PRODUCT USED FOR UNKNOWN INDICATION
     Route: 065
  4. ONFI [Suspect]
     Active Substance: CLOBAZAM
     Indication: SEIZURE
     Route: 048
     Dates: start: 20151104

REACTIONS (2)
  - Pyrexia [Unknown]
  - Seizure [Unknown]

NARRATIVE: CASE EVENT DATE: 20180807
